FAERS Safety Report 9338868 (Version 1)
Quarter: 2013Q2

REPORT INFORMATION
  Report Type: Spontaneous
  Country: US (occurrence: US)
  Receive Date: 20130610
  Receipt Date: 20130610
  Transmission Date: 20140414
  Serious: No
  Sender: FDA-Public Use
  Company Number: US-VERTEX PHARMACEUTICALS INC-2013-006659

PATIENT
  Age: 64 Year
  Sex: Female

DRUGS (4)
  1. INCIVEK [Suspect]
     Indication: HEPATITIS C
     Dosage: 750 MG, TID
     Route: 048
     Dates: start: 20120601, end: 201209
  2. RIBAVIRIN [Suspect]
     Indication: HEPATITIS C
     Dosage: 2 UNK, BID
     Dates: start: 20120601
  3. RIBAVIRIN [Suspect]
     Dosage: 1.5 UNK, BID
     Dates: end: 20121115
  4. PEGASYS [Suspect]
     Indication: HEPATITIS C
     Dosage: 180 ?G, QW
     Route: 058
     Dates: start: 20120601, end: 20121115

REACTIONS (12)
  - Dehydration [Recovered/Resolved]
  - Alopecia [Recovered/Resolved]
  - Weight decreased [Recovered/Resolved]
  - Tongue discolouration [Recovered/Resolved]
  - Glossodynia [Recovered/Resolved]
  - Dry skin [Recovered/Resolved]
  - Hepatitis C [Not Recovered/Not Resolved]
  - Loss of consciousness [Recovered/Resolved]
  - Haemorrhoids [Recovered/Resolved]
  - Pruritus [Recovered/Resolved]
  - Anaemia [Recovered/Resolved]
  - Vomiting [Recovered/Resolved]
